FAERS Safety Report 16352104 (Version 1)
Quarter: 2019Q3

REPORT INFORMATION
  Report Type: Spontaneous
  Country: US (occurrence: US)
  Receive Date: 20190523
  Receipt Date: 20190523
  Transmission Date: 20191004
  Serious: No
  Sender: FDA-Public Use
  Company Number: None

PATIENT
  Age: 65 Year
  Sex: Female
  Weight: 126 kg

DRUGS (6)
  1. LOSARTAN TABS 100MG GENERIC FOR: COZAAR TABS [Suspect]
     Active Substance: LOSARTAN
     Indication: CHRONIC KIDNEY DISEASE
     Dosage: ?          QUANTITY:1 TABLET(S);?
     Route: 048
     Dates: start: 20190225
  2. CALCIUM CITRATE [Concomitant]
     Active Substance: CALCIUM CITRATE
  3. ASPIRIN. [Concomitant]
     Active Substance: ASPIRIN
  4. ATVORSTATIN [Concomitant]
  5. ATENELOL [Concomitant]
     Active Substance: ATENOLOL
  6. LOSARTAN TABS 100MG GENERIC FOR: COZAAR TABS [Suspect]
     Active Substance: LOSARTAN
     Indication: HYPERTENSION
     Dosage: ?          QUANTITY:1 TABLET(S);?
     Route: 048
     Dates: start: 20190225

REACTIONS (1)
  - Alopecia [None]

NARRATIVE: CASE EVENT DATE: 20190422
